FAERS Safety Report 18019306 (Version 1)
Quarter: 2020Q3

REPORT INFORMATION
  Report Type: Spontaneous
  Country: US (occurrence: US)
  Receive Date: 20200713
  Receipt Date: 20200713
  Transmission Date: 20201103
  Serious: No
  Sender: FDA-Public Use
  Company Number: None

PATIENT
  Age: 68 Year
  Sex: Male
  Weight: 135.9 kg

DRUGS (10)
  1. ASPIRIN 81MG [Concomitant]
     Active Substance: ASPIRIN
  2. ONDANSETRON [Concomitant]
     Active Substance: ONDANSETRON
  3. ERLOTINIB [Suspect]
     Active Substance: ERLOTINIB
     Indication: PANCREATIC CARCINOMA
     Route: 048
     Dates: start: 20200619
  4. ATORVASTATIN [Concomitant]
     Active Substance: ATORVASTATIN
  5. CYANOCOBALAMIN. [Concomitant]
     Active Substance: CYANOCOBALAMIN
  6. ATIVAN [Concomitant]
     Active Substance: LORAZEPAM
  7. POTASSIUM [Concomitant]
     Active Substance: POTASSIUM
  8. METOPROLOL. [Concomitant]
     Active Substance: METOPROLOL
  9. HYDROCHLOROTHIAZIDE. [Concomitant]
     Active Substance: HYDROCHLOROTHIAZIDE
  10. LISINOPRIL. [Concomitant]
     Active Substance: LISINOPRIL

REACTIONS (2)
  - Rash [None]
  - Pruritus [None]

NARRATIVE: CASE EVENT DATE: 20200713
